FAERS Safety Report 9540076 (Version 1)
Quarter: 2013Q3

REPORT INFORMATION
  Report Type: Spontaneous
  Country: US (occurrence: US)
  Receive Date: 20130920
  Receipt Date: 20130920
  Transmission Date: 20140515
  Serious: Yes (Death)
  Sender: FDA-Public Use
  Company Number: US-BAXTER-2013BAX036269

PATIENT
  Age: 13 Year
  Sex: Female

DRUGS (3)
  1. 0.9% SODIUM CHLORIDE INJECTION [Suspect]
     Indication: DIABETIC KETOACIDOSIS
     Dosage: 20 ML/KG
     Route: 040
  2. 10% DEXTROSE INJECTION [Suspect]
     Indication: DIABETIC KETOACIDOSIS
     Route: 065
  3. INSULIN [Suspect]
     Indication: DIABETIC KETOACIDOSIS
     Route: 065

REACTIONS (1)
  - Sickle cell anaemia with crisis [Fatal]
